FAERS Safety Report 15126395 (Version 1)
Quarter: 2018Q3

REPORT INFORMATION
  Report Type: Report from Study
  Country: CA (occurrence: CA)
  Receive Date: 20180710
  Receipt Date: 20180710
  Transmission Date: 20181010
  Serious: Yes (Other)
  Sender: FDA-Public Use
  Company Number: CA-JNJFOC-20180635721

PATIENT
  Age: 77 Year
  Sex: Female
  Weight: 61.3 kg

DRUGS (1)
  1. REMICADE [Suspect]
     Active Substance: INFLIXIMAB
     Indication: CROHN^S DISEASE
     Route: 042
     Dates: start: 20120411

REACTIONS (2)
  - Skin cancer [Recovering/Resolving]
  - Infected naevus [Recovering/Resolving]

NARRATIVE: CASE EVENT DATE: 2018
